FAERS Safety Report 9405474 (Version 2)
Quarter: 2013Q3

REPORT INFORMATION
  Report Type: Spontaneous
  Country: IT (occurrence: IT)
  Receive Date: 20130717
  Receipt Date: 20130821
  Transmission Date: 20140515
  Serious: Yes (Hospitalization)
  Sender: FDA-Public Use
  Company Number: IT-BRISTOL-MYERS SQUIBB COMPANY-19091586

PATIENT
  Age: 68 Year
  Sex: Female

DRUGS (6)
  1. ORENCIA FOR INJ [Suspect]
     Indication: RHEUMATOID ARTHRITIS
     Route: 042
     Dates: start: 200805
  2. ACETYLSALICYLIC ACID [Concomitant]
     Route: 048
  3. EUTIROX [Concomitant]
     Dosage: 1DF:1 UNITS;5 MCG TAB
     Route: 048
  4. DELTACORTENE [Concomitant]
     Dosage: 1DF:05/UNIT;25 MG TAB
     Route: 048
  5. VALPRESSION [Concomitant]
     Route: 048
  6. DICLOREUM [Concomitant]
     Route: 048

REACTIONS (1)
  - Angina pectoris [Recovered/Resolved]
